FAERS Safety Report 5956048-9 (Version None)
Quarter: 2008Q4

REPORT INFORMATION
  Report Type: 
  Country: None (occurrence: None)
  Receive Date: 20081118
  Receipt Date: 20081110
  Transmission Date: 20090506
  Serious: Yes (Other)
  Sender: FDA-Public Use
  Company Number: US-RANBAXY-2008RR-19199

PATIENT
  Age: 63 Year
  Sex: Female

DRUGS (10)
  1. GABAPENTIN [Suspect]
  2. TAMOXIFEN [Suspect]
     Indication: BREAST CANCER
  3. METHIMAZOLE [Suspect]
     Indication: TOXIC NODULAR GOITRE
  4. ANASTROZOLE [Suspect]
     Indication: BREAST CANCER
  5. LETROZOLE [Suspect]
     Indication: BREAST CANCER
  6. TRASTUZUMAB [Suspect]
     Indication: BREAST CANCER
  7. FULVESTRANT [Suspect]
     Indication: BREAST CANCER
  8. IODINE [Concomitant]
     Indication: TOXIC NODULAR GOITRE
  9. COLCHICINE [Concomitant]
  10. METHIMAZOLE [Concomitant]

REACTIONS (1)
  - CUTANEOUS VASCULITIS [None]
